FAERS Safety Report 7131986-2 (Version None)
Quarter: 2010Q4

REPORT INFORMATION
  Report Type: 
  Country: None (occurrence: None)
  Receive Date: 20101129
  Receipt Date: 20101129
  Transmission Date: 20110411
  Serious: Yes (Disabling)
  Sender: FDA-Public Use
  Company Number: None

PATIENT
  Age: 85 Year
  Sex: Female
  Weight: 58.9676 kg

DRUGS (1)
  1. CIPROFLOXACIN [Suspect]
     Indication: CYSTITIS
     Dosage: 1 TAB 12 HRS 20 QTY
     Dates: start: 20100927, end: 20101007

REACTIONS (5)
  - ABASIA [None]
  - ASTHENIA [None]
  - DYSSTASIA [None]
  - MYALGIA [None]
  - PAIN IN EXTREMITY [None]
